FAERS Safety Report 21886199 (Version 2)
Quarter: 2023Q1

REPORT INFORMATION
  Report Type: Spontaneous
  Country: US (occurrence: US)
  Receive Date: 20230119
  Receipt Date: 20230210
  Transmission Date: 20230417
  Serious: Yes (Death, Hospitalization)
  Sender: FDA-Public Use
  Company Number: US-TEVA-2023-US-2845898

PATIENT
  Sex: Male

DRUGS (13)
  1. DOXYCYCLINE [Suspect]
     Active Substance: DOXYCYCLINE
     Indication: Venolymphatic malformation
     Dosage: 150MG ON DAY 6 OF LIFE
     Route: 065
  2. DOXYCYCLINE [Suspect]
     Active Substance: DOXYCYCLINE
     Dosage: 4X150MG- DAY 15-29
     Route: 065
  3. DOXYCYCLINE [Suspect]
     Active Substance: DOXYCYCLINE
     Dosage: 300 MG ON DAY 33
     Route: 065
  4. DOXYCYCLINE [Suspect]
     Active Substance: DOXYCYCLINE
     Dosage: 3X300MG- AT 1.5 MONTH
     Route: 065
  5. DOXYCYCLINE [Suspect]
     Active Substance: DOXYCYCLINE
     Dosage: 10X300MG- AT AROUND 2 MONTHS
     Route: 065
  6. DOXYCYCLINE [Suspect]
     Active Substance: DOXYCYCLINE
     Dosage: 7X300MG (AT AROUND 3 MONTHS)
     Route: 065
  7. BLEOMYCIN [Suspect]
     Active Substance: BLEOMYCIN SULFATE
     Indication: Venolymphatic malformation
     Dosage: 15 UNITS; TWO INJECTIONS , ADDITIONAL INFO: ROUTE: {TRANSMUCOSAL}
     Route: 050
  8. SIROLIMUS [Suspect]
     Active Substance: SIROLIMUS
     Indication: Venolymphatic malformation
     Dosage: .8 MG/M2 DAILY; 0.8 MG/M2 ONCE A DAY (0.14MG ) ON DAY 8 OF LIFE
     Route: 048
  9. SIROLIMUS [Suspect]
     Active Substance: SIROLIMUS
     Dosage: 0.18MG (AT 2 MONTH)
     Route: 048
  10. SIROLIMUS [Suspect]
     Active Substance: SIROLIMUS
     Dosage: 0.22MG (DAY 75)
     Route: 048
  11. SIROLIMUS [Suspect]
     Active Substance: SIROLIMUS
     Dosage: .3 MILLIGRAM DAILY; ONCE A DAY , DAY 83
     Route: 048
  12. SIROLIMUS [Suspect]
     Active Substance: SIROLIMUS
     Dosage: .4 MILLIGRAM DAILY; ONCE A DAY , DAY 118
     Route: 048
  13. PENTAMIDINE [Concomitant]
     Active Substance: PENTAMIDINE
     Indication: Antifungal prophylaxis
     Route: 042

REACTIONS (6)
  - Cardio-respiratory arrest [Fatal]
  - Pulmonary haemorrhage [Fatal]
  - Drug ineffective [Unknown]
  - Hypercapnia [Unknown]
  - Hypoxia [Unknown]
  - Cardiovascular disorder [Unknown]
